FAERS Safety Report 12791261 (Version 1)
Quarter: 2016Q3

REPORT INFORMATION
  Report Type: Spontaneous
  Country: US (occurrence: US)
  Receive Date: 20160929
  Receipt Date: 20160929
  Transmission Date: 20161109
  Serious: No
  Sender: FDA-Public Use
  Company Number: US-BAYER-2016-183389

PATIENT
  Age: 63 Year
  Sex: Female
  Weight: 96.15 kg

DRUGS (2)
  1. ALEVE PM [Suspect]
     Active Substance: DIPHENHYDRAMINE HYDROCHLORIDE\NAPROXEN SODIUM
     Indication: PAIN
     Dosage: 2 DF, UNK
     Route: 048
     Dates: end: 20160919
  2. ALEVE [Suspect]
     Active Substance: NAPROXEN SODIUM
     Dosage: UNK

REACTIONS (6)
  - Therapeutic response unexpected [Unknown]
  - Musculoskeletal discomfort [Unknown]
  - Discomfort [Unknown]
  - Product use issue [None]
  - Product use issue [Unknown]
  - Dizziness [None]

NARRATIVE: CASE EVENT DATE: 20160920
